FAERS Safety Report 14089065 (Version 22)
Quarter: 2019Q3

REPORT INFORMATION
  Report Type: Report from Study
  Country: CA (occurrence: CA)
  Receive Date: 20171014
  Receipt Date: 20190927
  Transmission Date: 20191004
  Serious: Yes (Other)
  Sender: FDA-Public Use
  Company Number: CA-BRISTOL-MYERS SQUIBB COMPANY-BMS-2017-020723

PATIENT
  Age: 68 Year
  Sex: Female

DRUGS (13)
  1. HUMULIN R [Concomitant]
     Active Substance: INSULIN HUMAN
     Indication: PRODUCT USED FOR UNKNOWN INDICATION
     Dosage: UNK
     Route: 065
  2. TRESIBA [Concomitant]
     Active Substance: INSULIN DEGLUDEC
     Indication: PRODUCT USED FOR UNKNOWN INDICATION
     Dosage: UNK
     Route: 065
  3. CLONAZEPAM. [Concomitant]
     Active Substance: CLONAZEPAM
     Indication: PRODUCT USED FOR UNKNOWN INDICATION
     Route: 065
  4. TYLENOL [Concomitant]
     Active Substance: ACETAMINOPHEN
     Indication: ARTHRITIS
     Dosage: UNK
     Route: 065
  5. ASA [Concomitant]
     Active Substance: ASPIRIN
     Indication: PRODUCT USED FOR UNKNOWN INDICATION
     Dosage: UNK
     Route: 065
  6. ABATACEPT [Suspect]
     Active Substance: ABATACEPT
     Indication: RHEUMATOID ARTHRITIS
     Dosage: 750 MG, Q4WK
     Route: 042
     Dates: start: 20130110
  7. RAMIPRIL. [Concomitant]
     Active Substance: RAMIPRIL
     Indication: PRODUCT USED FOR UNKNOWN INDICATION
     Dosage: UNK
     Route: 065
  8. TYLENOL EXTRA STRENGTH [Concomitant]
     Active Substance: ACETAMINOPHEN
     Indication: PRODUCT USED FOR UNKNOWN INDICATION
     Dosage: UNK
     Route: 065
  9. NOVORAPID [Concomitant]
     Active Substance: INSULIN ASPART
     Indication: PRODUCT USED FOR UNKNOWN INDICATION
     Dosage: UNK
     Route: 065
  10. HUMULIN NOS [Concomitant]
     Active Substance: INSULIN HUMAN
     Indication: PRODUCT USED FOR UNKNOWN INDICATION
     Route: 065
  11. TEAR                               /00007002/ [Concomitant]
     Indication: PRODUCT USED FOR UNKNOWN INDICATION
     Dosage: UNK
     Route: 065
  12. METROGEL [Concomitant]
     Active Substance: METRONIDAZOLE
     Indication: PRODUCT USED FOR UNKNOWN INDICATION
     Dosage: UNK
     Route: 065
  13. EYE DROPS [NAPHAZOLINE HYDROCHLORIDE] [Concomitant]
     Indication: PRODUCT USED FOR UNKNOWN INDICATION
     Dosage: UNK
     Route: 065

REACTIONS (50)
  - Back pain [Not Recovered/Not Resolved]
  - Hyperglycaemia [Recovering/Resolving]
  - Fungal infection [Recovered/Resolved]
  - Dry eye [Recovered/Resolved]
  - Gastrointestinal disorder [Unknown]
  - Arthritis [Unknown]
  - Erythema [Not Recovered/Not Resolved]
  - Pain in extremity [Not Recovered/Not Resolved]
  - Neck pain [Recovering/Resolving]
  - Influenza [Unknown]
  - Skin disorder [Recovered/Resolved]
  - Adhesion [Unknown]
  - Ear infection [Unknown]
  - Diabetes mellitus inadequate control [Recovered/Resolved]
  - Limb injury [Recovering/Resolving]
  - Joint injury [Unknown]
  - Nasopharyngitis [Not Recovered/Not Resolved]
  - Eye infection [Recovered/Resolved]
  - Joint dislocation [Unknown]
  - Swelling [Not Recovered/Not Resolved]
  - Poor venous access [Recovered/Resolved]
  - Constipation [Recovered/Resolved]
  - Skin lesion [Not Recovered/Not Resolved]
  - Ocular hyperaemia [Unknown]
  - Breast mass [Unknown]
  - Deafness [Unknown]
  - Fall [Recovering/Resolving]
  - Insomnia [Not Recovered/Not Resolved]
  - Ocular discomfort [Unknown]
  - Pain [Not Recovered/Not Resolved]
  - Oropharyngeal pain [Recovered/Resolved]
  - Joint swelling [Not Recovered/Not Resolved]
  - Limb mass [Not Recovered/Not Resolved]
  - Muscle strain [Recovered/Resolved]
  - Diverticulitis [Unknown]
  - Arthralgia [Recovered/Resolved]
  - Inflammation [Recovered/Resolved]
  - Gastric disorder [Not Recovered/Not Resolved]
  - Ear pain [Recovered/Resolved]
  - Macule [Unknown]
  - Limb discomfort [Not Recovered/Not Resolved]
  - Urinary tract infection [Unknown]
  - Skin laceration [Unknown]
  - Hot flush [Unknown]
  - Mobility decreased [Unknown]
  - Non-cardiac chest pain [Unknown]
  - Dizziness [Recovered/Resolved]
  - Hypoglycaemia [Unknown]
  - Diabetic eye disease [Not Recovered/Not Resolved]
  - Hypoaesthesia [Unknown]

NARRATIVE: CASE EVENT DATE: 20170224
